FAERS Safety Report 21162984 (Version 2)
Quarter: 2022Q3

REPORT INFORMATION
  Report Type: Spontaneous
  Country: JP (occurrence: JP)
  Receive Date: 20220802
  Receipt Date: 20220902
  Transmission Date: 20221026
  Serious: Yes (Death, Other)
  Sender: FDA-Public Use
  Company Number: JP-MSD-M2022-28941

PATIENT
  Age: 87 Year
  Sex: Female

DRUGS (5)
  1. LAGEVRIO [Suspect]
     Active Substance: MOLNUPIRAVIR
     Indication: COVID-19 treatment
     Dosage: 800 MILLIGRAM, BID
     Route: 048
     Dates: start: 20220714, end: 20220715
  2. ALLOPURINOL [Suspect]
     Active Substance: ALLOPURINOL
     Indication: Hyperuricaemia
     Dosage: 100 MILLIGRAM, BID
     Route: 048
  3. TEGRETOL [Suspect]
     Active Substance: CARBAMAZEPINE
     Indication: Schizophrenia
     Dosage: 100 MILLIGRAM, BID
     Route: 048
  4. VOGLIBOSE [Suspect]
     Active Substance: VOGLIBOSE
     Indication: Diabetes mellitus
     Dosage: 0.2 MILLIGRAM, TID
     Route: 048
  5. FUROSEMIDE [Suspect]
     Active Substance: FUROSEMIDE
     Indication: Oedema
     Dosage: 20 MILLIGRAM, BID
     Route: 048

REACTIONS (9)
  - General physical health deterioration [Fatal]
  - Cardiac failure chronic [Fatal]
  - Cerebral haemorrhage [Fatal]
  - Enterostomy [Fatal]
  - Hyperuricaemia [Fatal]
  - Schizophrenia [Fatal]
  - Diabetes mellitus [Fatal]
  - Neuropathy peripheral [Fatal]
  - Choking [Recovered/Resolved]

NARRATIVE: CASE EVENT DATE: 20220714
